FAERS Safety Report 8209815-5 (Version None)
Quarter: 2012Q1

REPORT INFORMATION
  Report Type: 
  Country: None (occurrence: None)
  Receive Date: 20120314
  Receipt Date: 20120309
  Transmission Date: 20120608
  Serious: Yes (Death, Hospitalization)
  Sender: FDA-Public Use
  Company Number: US-PFIZER INC-2005095942

PATIENT
  Sex: Female
  Weight: 48 kg

DRUGS (14)
  1. ACETAMINOPHEN [Suspect]
     Indication: HEADACHE
     Dosage: 1-2 G WEEKLY
     Route: 048
     Dates: start: 20040701
  2. MONTELUKAST [Concomitant]
     Indication: ASTHMA
     Dosage: 10 MG, 1X/DAY
     Route: 048
     Dates: start: 20030703
  3. ZANTAC [Concomitant]
     Route: 048
     Dates: start: 20040715
  4. EUCERIN [Concomitant]
     Route: 061
     Dates: start: 20041007
  5. PREVACID [Concomitant]
     Route: 048
     Dates: start: 20030703
  6. ALBUTEROL [Concomitant]
     Indication: ASTHMA
     Dosage: UNK
     Route: 055
     Dates: start: 20030703
  7. MEGACE [Concomitant]
     Route: 048
     Dates: start: 20041216
  8. SUNITINIB MALATE [Suspect]
     Indication: GASTROINTESTINAL STROMAL TUMOUR
     Dosage: 50 MG, 1X/DAY, 4 WEEKS ON/2 WEEKS OFF
     Route: 048
     Dates: start: 20040716, end: 20050702
  9. SYNTHROID [Suspect]
     Dosage: 100 UG, 1X/DAY
     Dates: start: 20050606
  10. TYLENOL PM [Suspect]
     Indication: INSOMNIA
     Dosage: 500 MG, 1X/DAY
     Route: 048
     Dates: start: 20040903
  11. ZYRTEC [Concomitant]
     Indication: ASTHMA
     Dosage: 10 MG, 1X/DAY
     Route: 048
     Dates: start: 20030703
  12. MOTRIN [Concomitant]
     Route: 048
     Dates: start: 20030705
  13. SYNTHROID [Suspect]
     Indication: HYPOTHYROIDISM
     Dosage: 50 UG, 1X/DAY
     Route: 048
     Dates: start: 20050531
  14. SYNTHROID [Suspect]
     Dosage: 150 UG, 1X/DAY
     Dates: start: 20050616

REACTIONS (3)
  - HEPATOTOXICITY [None]
  - HEPATIC FAILURE [None]
  - DEHYDRATION [None]
